FAERS Safety Report 8775388 (Version 1)
Quarter: 2012Q4

REPORT INFORMATION
  Report Type: 
  Country: US (occurrence: US)
  Receive Date: 20120910
  Receipt Date: 20120910
  Transmission Date: 20130627
  Serious: Yes (Other)
  Sender: FDA-Public Use
  Company Number: US-ASTRAZENECA-2012SE65764

PATIENT
  Age: 82 Year
  Sex: Male
  Weight: 72.6 kg

DRUGS (6)
  1. CRESTOR [Suspect]
     Route: 048
     Dates: start: 2005
  2. ASA [Concomitant]
  3. METOPROLOL [Concomitant]
  4. LISINOPRIL [Concomitant]
  5. SIMVASTATIN [Concomitant]
  6. TERAZOSIN [Concomitant]

REACTIONS (4)
  - Angina pectoris [Unknown]
  - Feeling abnormal [Unknown]
  - Pain [Unknown]
  - Dizziness [Unknown]
